FAERS Safety Report 8591929-1 (Version None)
Quarter: 2012Q3

REPORT INFORMATION
  Report Type: 
  Country: None (occurrence: None)
  Receive Date: 20120814
  Receipt Date: 20120809
  Transmission Date: 20120928
  Serious: Yes (Death, Life-Threatening)
  Sender: FDA-Public Use
  Company Number: AU-ASTRAZENECA-2012SE54693

PATIENT
  Age: 23 Year

DRUGS (6)
  1. NOREPINEPHRINE [Concomitant]
     Dosage: 0.3 MG/KG/H
  2. NOREPINEPHRINE [Concomitant]
     Dosage: 0.3 MICROGRAM/KG/H
  3. MORPHINE [Concomitant]
     Dosage: 0.07 MG/KG/H
  4. MORPHINE [Concomitant]
     Dosage: 0.1 MG/KG/H
  5. MIDAZOLAM [Concomitant]
     Dosage: 0.1 MG/KG/H
  6. PROPOFOL [Suspect]
     Indication: SEDATION
     Dosage: 4.7 MG/KG/H
     Route: 042

REACTIONS (3)
  - PROPOFOL INFUSION SYNDROME [None]
  - SHOCK [None]
  - CIRCULATORY COLLAPSE [None]
